FAERS Safety Report 19641620 (Version 2)
Quarter: 2021Q3

REPORT INFORMATION
  Report Type: Report from Study
  Country: US (occurrence: US)
  Receive Date: 20210731
  Receipt Date: 20210831
  Transmission Date: 20211014
  Serious: No
  Sender: FDA-Public Use
  Company Number: US-SA-2021SA252100

PATIENT
  Age: 30 Year
  Sex: Female

DRUGS (2)
  1. DUPIXENT [Suspect]
     Active Substance: DUPILUMAB
     Dosage: 300 MG, QOW
     Route: 058
     Dates: start: 20210307, end: 202106
  2. DUPIXENT [Suspect]
     Active Substance: DUPILUMAB
     Indication: ASTHMA
     Dosage: 600 MG, TOTAL
     Route: 058
     Dates: start: 20210221, end: 20210221

REACTIONS (3)
  - Exposure during pregnancy [Unknown]
  - Eye pruritus [Unknown]
  - Product use issue [Unknown]

NARRATIVE: CASE EVENT DATE: 20210221
